FAERS Safety Report 15225513 (Version 3)
Quarter: 2018Q4

REPORT INFORMATION
  Report Type: Report from Study
  Country: None (occurrence: US)
  Receive Date: 20180801
  Receipt Date: 20181010
  Transmission Date: 20190204
  Serious: Yes (Hospitalization)
  Sender: FDA-Public Use
  Company Number: US-ABBVIE-18K-163-2436669-00

PATIENT
  Age: 84 Year
  Sex: Female
  Weight: 49.94 kg

DRUGS (1)
  1. HUMIRA [Suspect]
     Active Substance: ADALIMUMAB
     Indication: COLITIS ULCERATIVE
     Route: 058

REACTIONS (9)
  - Diarrhoea [Not Recovered/Not Resolved]
  - Hiatus hernia [Recovering/Resolving]
  - Decreased appetite [Unknown]
  - Gallbladder operation [Recovering/Resolving]
  - Cataract [Unknown]
  - Gastric operation [Recovering/Resolving]
  - Weight decreased [Unknown]
  - Fatigue [Unknown]
  - Vomiting [Unknown]

NARRATIVE: CASE EVENT DATE: 2018
